FAERS Safety Report 13408489 (Version 4)
Quarter: 2022Q1

REPORT INFORMATION
  Report Type: Spontaneous
  Country: US (occurrence: US)
  Receive Date: 20170406
  Receipt Date: 20220302
  Transmission Date: 20220424
  Serious: No
  Sender: FDA-Public Use
  Company Number: US-JNJFOC-20161009351

PATIENT
  Age: 16 Year
  Sex: Male

DRUGS (14)
  1. RISPERDAL [Suspect]
     Active Substance: RISPERIDONE
     Indication: Anger
     Dosage: 0.25 MG, 1 QAM AND LUNCH AND 2 AT NIGHT
     Route: 048
     Dates: start: 20011120, end: 20011217
  2. RISPERDAL [Suspect]
     Active Substance: RISPERIDONE
     Indication: Mood swings
     Route: 048
     Dates: start: 20020211
  3. RISPERDAL [Suspect]
     Active Substance: RISPERIDONE
     Indication: Aggression
     Route: 048
     Dates: start: 20020312, end: 20021219
  4. RISPERDAL [Suspect]
     Active Substance: RISPERIDONE
     Indication: Depression
     Route: 048
     Dates: start: 20030303
  5. RISPERDAL [Suspect]
     Active Substance: RISPERIDONE
     Indication: Autism spectrum disorder
     Dosage: 1 MG AM, 2 MG AFTER SCHOOL
     Route: 048
     Dates: start: 20030520
  6. RISPERDAL [Suspect]
     Active Substance: RISPERIDONE
     Indication: Oppositional defiant disorder
     Dosage: 2 MG- 1/2-1 IN THE MORNING AND 1 AT NIGHT
     Route: 048
     Dates: start: 20030530
  7. RISPERDAL [Suspect]
     Active Substance: RISPERIDONE
     Indication: Attention deficit hyperactivity disorder
     Route: 048
     Dates: start: 20050602, end: 20050712
  8. RISPERDAL [Suspect]
     Active Substance: RISPERIDONE
     Route: 048
  9. RISPERDAL [Suspect]
     Active Substance: RISPERIDONE
     Indication: Product used for unknown indication
     Route: 048
  10. RISPERDAL [Suspect]
     Active Substance: RISPERIDONE
  11. RISPERDAL [Suspect]
     Active Substance: RISPERIDONE
     Indication: Product used for unknown indication
     Route: 048
  12. RISPERDAL [Suspect]
     Active Substance: RISPERIDONE
  13. RISPERIDONE [Suspect]
     Active Substance: RISPERIDONE
     Indication: Product used for unknown indication
     Route: 048
  14. CLONIDINE [Suspect]
     Active Substance: CLONIDINE
     Indication: Product used for unknown indication
     Route: 048

REACTIONS (5)
  - Emotional disorder [Unknown]
  - Gynaecomastia [Unknown]
  - Abnormal behaviour [Unknown]
  - Sedation complication [Unknown]
  - Increased appetite [Unknown]

NARRATIVE: CASE EVENT DATE: 20081201
